FAERS Safety Report 8474899-6 (Version None)
Quarter: 2012Q2

REPORT INFORMATION
  Report Type: 
  Country: None (occurrence: None)
  Receive Date: 20120628
  Receipt Date: 20120626
  Transmission Date: 20120825
  Serious: Yes (Hospitalization, Other)
  Sender: FDA-Public Use
  Company Number: GB-GENZYME-CLOF-1002157

PATIENT
  Sex: Male

DRUGS (3)
  1. DAUNORUBICIN HCL [Suspect]
     Indication: ACUTE LEUKAEMIA
     Dosage: UNK
     Route: 065
     Dates: start: 20120420, end: 20120424
  2. MOZOBIL [Suspect]
     Indication: ACUTE LEUKAEMIA
     Dosage: UNK
     Route: 065
     Dates: start: 20120420
  3. EVOLTRA [Suspect]
     Indication: ACUTE LEUKAEMIA
     Dosage: UNK
     Route: 065
     Dates: start: 20120420, end: 20120424

REACTIONS (8)
  - ANAEMIA [None]
  - WHITE BLOOD CELL COUNT DECREASED [None]
  - FATIGUE [None]
  - PERITONSILLAR ABSCESS [None]
  - NEUTROPENIA [None]
  - THROMBOCYTOPENIA [None]
  - CHEST PAIN [None]
  - PYREXIA [None]
